FAERS Safety Report 7154305-4 (Version None)
Quarter: 2010Q4

REPORT INFORMATION
  Report Type: 
  Country: None (occurrence: None)
  Receive Date: 20101213
  Receipt Date: 20101130
  Transmission Date: 20110411
  Serious: Yes (Hospitalization)
  Sender: FDA-Public Use
  Company Number: US-WATSON-2010-15742

PATIENT
  Age: 13 Month
  Sex: Female

DRUGS (1)
  1. DIPHENHYDRAMINE HCL [Suspect]
     Indication: ACCIDENTAL EXPOSURE
     Dosage: 50 MG/KG, SINGLE
     Route: 048

REACTIONS (8)
  - ACCIDENTAL EXPOSURE [None]
  - ACCIDENTAL OVERDOSE [None]
  - DRY SKIN [None]
  - ELECTROCARDIOGRAM QRS COMPLEX PROLONGED [None]
  - FLUSHING [None]
  - MENTAL STATUS CHANGES [None]
  - NYSTAGMUS [None]
  - TACHYCARDIA [None]
